FAERS Safety Report 6222102-X (Version None)
Quarter: 2009Q2

REPORT INFORMATION
  Report Type: 
  Country: None (occurrence: None)
  Receive Date: 20090608
  Receipt Date: 20090608
  Transmission Date: 20091009
  Serious: Yes (Life-Threatening, Hospitalization, Disabling)
  Sender: FDA-Public Use
  Company Number: None

PATIENT
  Age: 59 Year
  Sex: Male
  Weight: 97.5234 kg

DRUGS (1)
  1. PROTAMINE SULFATE [Suspect]
     Indication: CAROTID ARTERY OCCLUSION
     Dosage: IV
     Route: 042
     Dates: start: 20090421, end: 20090421

REACTIONS (7)
  - ANAPHYLACTIC SHOCK [None]
  - AUTOIMMUNE DISORDER [None]
  - CEREBROVASCULAR ACCIDENT [None]
  - GAIT DISTURBANCE [None]
  - IMPAIRED WORK ABILITY [None]
  - MONOPLEGIA [None]
  - NO REACTION ON PREVIOUS EXPOSURE TO DRUG [None]
